FAERS Safety Report 22635937 (Version 1)
Quarter: 2023Q2

REPORT INFORMATION
  Report Type: Spontaneous
  Country: FR (occurrence: None)
  Receive Date: 20230623
  Receipt Date: 20230623
  Transmission Date: 20230721
  Serious: Yes (Death)
  Sender: FDA-Public Use
  Company Number: 2023A142831

PATIENT
  Age: 42 Year
  Sex: Male

DRUGS (12)
  1. QUETIAPINE [Suspect]
     Active Substance: QUETIAPINE
     Dates: end: 20220714
  2. 11-HYDROXY-.DELTA.9-TETRAHYDROCANNABINOL [Suspect]
     Active Substance: 11-HYDROXY-.DELTA.9-TETRAHYDROCANNABINOL
     Dates: end: 20220714
  3. OXAZEPAM [Suspect]
     Active Substance: OXAZEPAM
     Dates: end: 20220714
  4. AMOXAPINE [Suspect]
     Active Substance: AMOXAPINE
     Dates: end: 20220714
  5. TRIMEPRAZINE [Suspect]
     Active Substance: TRIMEPRAZINE
     Dates: end: 20220714
  6. BENZOYLECGONINE [Suspect]
     Active Substance: BENZOYLECGONINE
     Dates: end: 20220714
  7. CANNABINOLIC ACID [Suspect]
     Active Substance: CANNABINOLIC ACID
     Dates: end: 20220714
  8. MORPHINE [Suspect]
     Active Substance: MORPHINE
     Dates: end: 20220714
  9. COCAINE [Suspect]
     Active Substance: COCAINE
     Dates: end: 20220714
  10. LOXAPINE [Suspect]
     Active Substance: LOXAPINE
     Dates: end: 20220714
  11. CODEINE [Suspect]
     Active Substance: CODEINE
     Dates: end: 20220714
  12. DRONABINOL [Suspect]
     Active Substance: DRONABINOL
     Dates: end: 20220714

REACTIONS (2)
  - Poisoning [Fatal]
  - Drug abuse [Fatal]

NARRATIVE: CASE EVENT DATE: 20220714
